FAERS Safety Report 11424444 (Version 1)
Quarter: 2015Q3

REPORT INFORMATION
  Report Type: Spontaneous
  Country: US (occurrence: US)
  Receive Date: 20150827
  Receipt Date: 20150827
  Transmission Date: 20151125
  Serious: No
  Sender: FDA-Public Use
  Company Number: US-SA-2014SA178732

PATIENT
  Age: 77 Year
  Sex: Female

DRUGS (7)
  1. MULTAQ [Suspect]
     Active Substance: DRONEDARONE
     Route: 065
  2. FLECAINIDE ACETATE. [Suspect]
     Active Substance: FLECAINIDE ACETATE
     Route: 065
  3. AMIODARONE [Suspect]
     Active Substance: AMIODARONE
     Route: 065
  4. NORVASC [Suspect]
     Active Substance: AMLODIPINE BESYLATE
     Route: 065
  5. ALTACE [Suspect]
     Active Substance: RAMIPRIL
     Route: 065
  6. TENORMIN [Suspect]
     Active Substance: ATENOLOL
     Route: 065
  7. PROPAFENONE. [Suspect]
     Active Substance: PROPAFENONE
     Route: 065

REACTIONS (1)
  - Drug hypersensitivity [Unknown]

NARRATIVE: CASE EVENT DATE: 2008
